FAERS Safety Report 9454832 (Version 1)
Quarter: 2013Q3

REPORT INFORMATION
  Report Type: Spontaneous
  Country: US (occurrence: US)
  Receive Date: 20130813
  Receipt Date: 20130813
  Transmission Date: 20140515
  Serious: Yes (Death, Hospitalization)
  Sender: FDA-Public Use
  Company Number: US-ROCHE-1260346

PATIENT
  Sex: Male

DRUGS (1)
  1. RITUXAN [Suspect]
     Indication: NON-HODGKIN^S LYMPHOMA
     Dosage: INITIAL 4 ONCE WEEKLY THEN 2 YEAR MAINTENANCE
     Route: 065

REACTIONS (4)
  - Infection [Fatal]
  - Pyrexia [Fatal]
  - Pain [Fatal]
  - Sepsis [Fatal]
